FAERS Safety Report 5116226-8 (Version None)
Quarter: 2006Q3

REPORT INFORMATION
  Report Type: 
  Country: None (occurrence: None)
  Receive Date: 20060927
  Receipt Date: 20060925
  Transmission Date: 20061208
  Serious: Yes (Other)
  Sender: FDA-Public Use
  Company Number: US-GLAXOSMITHKLINE-A0621370A

PATIENT
  Age: 39 Year
  Sex: Male

DRUGS (1)
  1. COREG [Suspect]
     Indication: MYOCARDIAL INFARCTION
     Route: 048

REACTIONS (19)
  - ARTERIAL OCCLUSIVE DISEASE [None]
  - ASTHENIA [None]
  - CHEST PAIN [None]
  - DEPRESSION [None]
  - DIABETES MELLITUS [None]
  - ERYTHEMA [None]
  - FEAR [None]
  - FEELINGS OF WORTHLESSNESS [None]
  - GOUTY ARTHRITIS [None]
  - HAEMATOCRIT DECREASED [None]
  - HAEMOGLOBIN DECREASED [None]
  - HEART RATE INCREASED [None]
  - HYPOACTIVE SEXUAL DESIRE DISORDER [None]
  - HYPOTHYROIDISM [None]
  - NECK PAIN [None]
  - NERVE INJURY [None]
  - NEURITIS [None]
  - PAIN [None]
  - PAIN IN EXTREMITY [None]
